FAERS Safety Report 7431862-1 (Version None)
Quarter: 2011Q2

REPORT INFORMATION
  Report Type: 
  Country: None (occurrence: None)
  Receive Date: 20110422
  Receipt Date: 20110418
  Transmission Date: 20111010
  Serious: Yes (Death)
  Sender: FDA-Public Use
  Company Number: PHHY2011US18270

PATIENT
  Sex: Male

DRUGS (21)
  1. AFINITOR [Suspect]
     Dosage: 10 MG, EVERY DAY
     Route: 048
  2. AZOPT [Concomitant]
     Route: 048
  3. URSODIOL [Concomitant]
     Dosage: 300 MG, UNK
     Route: 048
  4. PILOCARPINE [Concomitant]
  5. OMEPRAZOLE [Concomitant]
     Route: 048
  6. METFORMIN [Concomitant]
     Dosage: 1000 MG, UNK
     Route: 048
  7. GLIPIZIDE W/METFORMIN [Concomitant]
  8. FLOMAX [Concomitant]
     Dosage: 0.4 MG, UNK
     Route: 048
  9. MEGACE [Concomitant]
  10. FML LIQUIFILM [Concomitant]
  11. PANCREASE MT 16 [Concomitant]
     Route: 048
  12. FLUTICASONE PROPIONATE [Concomitant]
     Dosage: 50 UG, UNK
  13. AVODART [Concomitant]
     Dosage: 0.5 MG, UNK
  14. XALATAN [Concomitant]
  15. LANTUS [Concomitant]
  16. VITAMIN B-12 [Concomitant]
     Dosage: 1000 UG, UNK
  17. JANUVIA [Concomitant]
     Dosage: 25 MG, UNK
  18. LORATADINE [Concomitant]
     Dosage: 10 MG, UNK
     Route: 048
  19. SANDOSTATIN [Concomitant]
     Dosage: 200 UG, UNK
  20. RANITIDINE [Concomitant]
     Dosage: 300 MG, UNK
     Route: 048
  21. ASPIRIN [Concomitant]
     Dosage: 81 MG, UNK
     Route: 048

REACTIONS (1)
  - DEATH [None]
